FAERS Safety Report 10067567 (Version 1)
Quarter: 2014Q2

REPORT INFORMATION
  Report Type: Spontaneous
  Country: US (occurrence: None)
  Receive Date: 20140408
  Receipt Date: 20140408
  Transmission Date: 20141212
  Serious: No
  Sender: FDA-Public Use
  Company Number: None

PATIENT
  Age: 55 Year
  Sex: Female

DRUGS (1)
  1. HUMIRA 40 MG [Suspect]
     Dosage: HUMIRA 40 MG EVERY 14 DAYS SQ
     Route: 058
     Dates: start: 20140304, end: 20140321

REACTIONS (2)
  - Arthritis [None]
  - Vision blurred [None]
